FAERS Safety Report 11021318 (Version 1)
Quarter: 2015Q2

REPORT INFORMATION
  Report Type: Spontaneous
  Country: US (occurrence: US)
  Receive Date: 20150413
  Receipt Date: 20150413
  Transmission Date: 20150821
  Serious: No
  Sender: FDA-Public Use
  Company Number: US-ASTRAZENECA-2014SE61326

PATIENT
  Age: 3287 Week
  Sex: Female
  Weight: 73.5 kg

DRUGS (4)
  1. BYDUREON [Suspect]
     Active Substance: EXENATIDE
     Indication: TYPE 2 DIABETES MELLITUS
     Dosage: (2 MG 4 COUNT VIAL) 2 MG, ONCE A WEEK
     Route: 058
     Dates: start: 2014
  2. LISINOPRIL. [Concomitant]
     Active Substance: LISINOPRIL
  3. METFORMIN [Concomitant]
     Active Substance: METFORMIN HYDROCHLORIDE
     Indication: TYPE 2 DIABETES MELLITUS
     Dosage: 750, DAILY
     Route: 058
  4. AMLODIPINE [Concomitant]
     Active Substance: AMLODIPINE BESYLATE

REACTIONS (5)
  - Injection site injury [Unknown]
  - Medication error [Unknown]
  - Injection site pain [Unknown]
  - Underdose [Unknown]
  - Injection site reaction [Unknown]

NARRATIVE: CASE EVENT DATE: 20150328
